FAERS Safety Report 9148365 (Version 1)
Quarter: 2013Q1

REPORT INFORMATION
  Report Type: Spontaneous
  Country: US (occurrence: US)
  Receive Date: 20130308
  Receipt Date: 20130308
  Transmission Date: 20140127
  Serious: No
  Sender: FDA-Public Use
  Company Number: US-ENDO PHARMACEUTICALS INC.-ENDC20120071

PATIENT
  Sex: Male

DRUGS (4)
  1. OXYCODONE/ACETAMINOPHEN 10MG/325MG [Suspect]
     Indication: BREAKTHROUGH PAIN
     Dosage: 20/650 MG
     Route: 048
     Dates: start: 20101217, end: 2012
  2. CLONAZEPAM [Concomitant]
     Indication: CONVULSION
     Route: 048
  3. CLONAZEPAM [Concomitant]
     Indication: ANXIETY
  4. MORPHINE SULFATE [Concomitant]
     Indication: BACK PAIN
     Route: 048
     Dates: start: 2012, end: 2012

REACTIONS (4)
  - Hepatic lesion [Not Recovered/Not Resolved]
  - Impaired gastric emptying [Not Recovered/Not Resolved]
  - Abdominal discomfort [Not Recovered/Not Resolved]
  - Dyspepsia [Not Recovered/Not Resolved]
